FAERS Safety Report 20368871 (Version 1)
Quarter: 2022Q1

REPORT INFORMATION
  Report Type: Spontaneous
  Country: US (occurrence: US)
  Receive Date: 20220124
  Receipt Date: 20220124
  Transmission Date: 20220424
  Serious: No
  Sender: FDA-Public Use
  Company Number: US-NOVARTISTESTPH-NVSC2022US014161

PATIENT
  Sex: Female

DRUGS (1)
  1. LATANOPROST [Suspect]
     Active Substance: LATANOPROST
     Indication: Product used for unknown indication
     Dosage: 0.005 %, (FREQUENCY: NIGHTLY BEFORE GOING TO BED), (ROUTE: EYEDROP)
     Route: 065
     Dates: start: 20211228

REACTIONS (2)
  - Eye movement disorder [Unknown]
  - Visual impairment [Unknown]
